FAERS Safety Report 17629642 (Version 9)
Quarter: 2022Q3

REPORT INFORMATION
  Report Type: Spontaneous
  Country: US (occurrence: US)
  Receive Date: 20200406
  Receipt Date: 20220818
  Transmission Date: 20221026
  Serious: Yes (Other)
  Sender: FDA-Public Use
  Company Number: US-PFIZER INC-2020139793

PATIENT
  Age: 67 Year
  Sex: Female
  Weight: 105.23 kg

DRUGS (1)
  1. XELJANZ XR [Suspect]
     Active Substance: TOFACITINIB CITRATE
     Dosage: 11 MG

REACTIONS (25)
  - Renal cancer [Unknown]
  - Suicidal ideation [Unknown]
  - Diabetes mellitus [Not Recovered/Not Resolved]
  - Immune system disorder [Unknown]
  - Aphonia [Unknown]
  - Influenza [Unknown]
  - Bronchitis [Unknown]
  - Illness [Unknown]
  - Hypoacusis [Unknown]
  - Headache [Unknown]
  - Condition aggravated [Unknown]
  - Fall [Unknown]
  - Pain in extremity [Unknown]
  - Poor quality sleep [Unknown]
  - Fibromyalgia [Unknown]
  - Pain [Unknown]
  - Pyrexia [Unknown]
  - Memory impairment [Unknown]
  - Visual impairment [Unknown]
  - Neoplasm [Unknown]
  - Arthropathy [Unknown]
  - Spinal disorder [Unknown]
  - Muscular weakness [Unknown]
  - COVID-19 [Not Recovered/Not Resolved]
  - Cough [Not Recovered/Not Resolved]

NARRATIVE: CASE EVENT DATE: 20200301
